FAERS Safety Report 13007228 (Version 1)
Quarter: 2016Q4

REPORT INFORMATION
  Report Type: Spontaneous
  Country: US (occurrence: US)
  Receive Date: 20161207
  Receipt Date: 20161207
  Transmission Date: 20170207
  Serious: No
  Sender: FDA-Public Use
  Company Number: US-BAYER-2016-228444

PATIENT
  Age: 85 Year
  Sex: Female
  Weight: 52.61 kg

DRUGS (1)
  1. CLARITIN [Suspect]
     Active Substance: LORATADINE
     Indication: RHINORRHOEA
     Dosage: 1 DF, QD
     Route: 048
     Dates: start: 20161102, end: 20161123

REACTIONS (2)
  - Drug ineffective [Unknown]
  - Lacrimation increased [Not Recovered/Not Resolved]
